FAERS Safety Report 7650228-2 (Version None)
Quarter: 2011Q3

REPORT INFORMATION
  Report Type: 
  Country: None (occurrence: None)
  Receive Date: 20110802
  Receipt Date: 20110729
  Transmission Date: 20111222
  Serious: Yes (Other)
  Sender: FDA-Public Use
  Company Number: US-SANOFI-AVENTIS-2011SA048937

PATIENT
  Age: 56 Year
  Sex: Female

DRUGS (1)
  1. MULTAQ [Suspect]
     Route: 065

REACTIONS (3)
  - HEPATIC ENZYME ABNORMAL [None]
  - ATRIAL FIBRILLATION [None]
  - VOMITING [None]
